FAERS Safety Report 21484636 (Version 1)
Quarter: 2022Q4

REPORT INFORMATION
  Report Type: Spontaneous
  Country: IN (occurrence: None)
  Receive Date: 20221020
  Receipt Date: 20221020
  Transmission Date: 20230113
  Serious: Yes (Hospitalization, Other)
  Sender: FDA-Public Use
  Company Number: IN-MICRO LABS LIMITED-ML2022-05206

PATIENT
  Age: 10 Year
  Sex: Male

DRUGS (24)
  1. LEVETIRACETAM [Suspect]
     Active Substance: LEVETIRACETAM
     Indication: Status epilepticus
     Dosage: 50-70 MG/KG (INCREASED)
  2. LEVETIRACETAM [Suspect]
     Active Substance: LEVETIRACETAM
  3. MIDAZOLAM [Suspect]
     Active Substance: MIDAZOLAM
     Indication: Status epilepticus
     Dosage: GRADUALLY DOSED UP TO 24 UG/KG/MINUTE
  4. VALPROATE SODIUM [Suspect]
     Active Substance: VALPROATE SODIUM
     Indication: Status epilepticus
     Dosage: INCREASED
  5. FOSPHENYTOIN [Suspect]
     Active Substance: FOSPHENYTOIN
     Indication: Status epilepticus
     Dosage: 30 PE/KG (INCREASED)
  6. ACYCLOVIR [Suspect]
     Active Substance: ACYCLOVIR
     Indication: Status epilepticus
     Route: 042
  7. PHENOBARBITAL [Suspect]
     Active Substance: PHENOBARBITAL
     Indication: Status epilepticus
     Dosage: LOADED AT 20 MG/KG
  8. PHENOBARBITAL [Suspect]
     Active Substance: PHENOBARBITAL
     Dosage: CONTINUED AT 6 MG/KG.
  9. PHENOBARBITAL [Suspect]
     Active Substance: PHENOBARBITAL
  10. TOPIRAMATE [Suspect]
     Active Substance: TOPIRAMATE
     Indication: Status epilepticus
     Dosage: 10 MG/KG FOR 2 DAYS
  11. TOPIRAMATE [Suspect]
     Active Substance: TOPIRAMATE
     Dosage: REDUCED TO 5 MG/KG/DAY IN TWO DIVIDED DOSES
  12. METHYLPREDNISOLONE [Suspect]
     Active Substance: METHYLPREDNISOLONE
     Indication: Status epilepticus
     Dosage: PULSE DOSES (30 MG/KG/DAY) FOR 3 DAYS
     Route: 042
  13. KETAMINE [Suspect]
     Active Substance: KETAMINE
     Indication: Status epilepticus
     Dosage: UP TO 6 MG/KG/HOUR
  14. HUMAN IMMUNOGLOBULIN G [Suspect]
     Active Substance: HUMAN IMMUNOGLOBULIN G
     Indication: Status epilepticus
     Dosage: OVER 5 DAYS (2 G/KG) FROM DAY 18
     Route: 042
  15. ISOFLURANE [Suspect]
     Active Substance: ISOFLURANE
     Indication: Anaesthesia
  16. ISOFLURANE [Suspect]
     Active Substance: ISOFLURANE
     Indication: Status epilepticus
  17. VIGABATRIN [Suspect]
     Active Substance: VIGABATRIN
     Indication: Status epilepticus
  18. PERAMPANEL [Suspect]
     Active Substance: PERAMPANEL
     Indication: Status epilepticus
  19. PREGABALIN [Suspect]
     Active Substance: PREGABALIN
     Indication: Status epilepticus
  20. OXCARBAZEPINE [Suspect]
     Active Substance: OXCARBAZEPINE
     Indication: Status epilepticus
  21. LACOSAMIDE [Suspect]
     Active Substance: LACOSAMIDE
     Indication: Status epilepticus
  22. PRIMIDONE [Suspect]
     Active Substance: PRIMIDONE
     Indication: Status epilepticus
  23. THIOPENTAL SODIUM [Suspect]
     Active Substance: THIOPENTAL SODIUM
     Indication: Status epilepticus
  24. RITUXIMAB [Concomitant]
     Active Substance: RITUXIMAB
     Indication: Haemodynamic instability

REACTIONS (1)
  - Epilepsy [Recovering/Resolving]
